APPROVED DRUG PRODUCT: ETYQA
Active Ingredient: ESTRADIOL; NORETHINDRONE ACETATE
Strength: 0.5MG;0.1MG
Dosage Form/Route: TABLET;ORAL
Application: A214729 | Product #001
Applicant: AUROBINDO PHARMA LTD
Approved: Jun 30, 2023 | RLD: No | RS: No | Type: DISCN